FAERS Safety Report 6993844-3 (Version None)
Quarter: 2010Q3

REPORT INFORMATION
  Report Type: 
  Country: None (occurrence: None)
  Receive Date: 20100917
  Receipt Date: 20100628
  Transmission Date: 20110219
  Serious: Yes (Other)
  Sender: FDA-Public Use
  Company Number: US-ASTRAZENECA-2006UW20021

PATIENT
  Age: 36 Year
  Sex: Female
  Weight: 81.6 kg

DRUGS (13)
  1. SEROQUEL [Suspect]
     Indication: BIPOLAR DISORDER
     Dosage: 25 MG TO 100 MG
     Route: 048
     Dates: start: 20030101, end: 20030601
  2. SEROQUEL [Suspect]
     Route: 048
     Dates: start: 20030131
  3. RISPERDAL [Suspect]
     Indication: BIPOLAR DISORDER
     Dates: start: 20030601, end: 20060401
  4. RISPERDAL [Suspect]
     Dates: start: 20051007
  5. RISPERDAL [Suspect]
     Dosage: 1-2 MG
     Dates: start: 20031101, end: 20051201
  6. BUSPAR [Concomitant]
     Dates: start: 20030711
  7. XANAX [Concomitant]
     Dates: start: 20030711
  8. SYNTHROID [Concomitant]
     Dates: start: 20051007
  9. FLONASE [Concomitant]
     Dates: start: 20051007
  10. FLEXERIL [Concomitant]
     Dates: start: 20051007
  11. GLUCOTROL [Concomitant]
     Dates: start: 20051007
  12. PERCOCET [Concomitant]
     Dosage: 10/325 EVERY 6 HOURS
     Dates: start: 20051007
  13. ABILIFY [Concomitant]
     Dates: start: 20050101, end: 20070101

REACTIONS (6)
  - BLOOD CHOLESTEROL INCREASED [None]
  - BLOOD TRIGLYCERIDES INCREASED [None]
  - HYPERLIPIDAEMIA [None]
  - PANCREATITIS [None]
  - TYPE 1 DIABETES MELLITUS [None]
  - TYPE 2 DIABETES MELLITUS [None]
